FAERS Safety Report 4411851-1 (Version None)
Quarter: 2004Q3

REPORT INFORMATION
  Report Type: 
  Country: None (occurrence: None)
  Receive Date: 20040730
  Receipt Date: 20040719
  Transmission Date: 20050211
  Serious: Yes (Death, Hospitalization)
  Sender: FDA-Public Use
  Company Number: US-BRISTOL-MYERS SQUIBB COMPANY-12644902

PATIENT
  Age: 83 Year
  Sex: Female
  Weight: 91 kg

DRUGS (14)
  1. WARFARIN SODIUM [Suspect]
     Indication: CARDIAC VALVE DISEASE
     Dosage: 2 MG ALTERNATING WITH 4 MG EVERY OTHER DAY
     Route: 048
  2. EFFEXOR [Concomitant]
  3. DIGITEK [Concomitant]
     Dosage: DURATION=2-3 YEARS
  4. DIOVAN [Concomitant]
     Dosage: DURATION=2-3 YEARS
  5. SPIRONOLACTONE [Concomitant]
     Dosage: DURATION=FEW MONTHS
  6. AMOXICILLIN [Concomitant]
     Dosage: GIVEN WHEN DENTAL WORK DONE
  7. LEVOXYL [Concomitant]
     Dosage: DURATION=2-3 YEARS
  8. PACERONE [Concomitant]
     Dosage: DURATION=2-3 YEARS
  9. EXELON [Concomitant]
     Dosage: DURATION=FEW MONTHS
  10. HYDROCHLOROTHIAZIDE [Concomitant]
     Dosage: DURATION=2-3 YEARS
  11. TAMOXIFEN [Concomitant]
     Dosage: DURATION=2-3 YEARS
  12. CRANBERRY [Concomitant]
     Dosage: DURATION=YEARS
  13. MULTI-VITAMIN [Concomitant]
     Dosage: DURATION=YEARS
  14. CALCIUM [Concomitant]
     Dosage: DURATION=YEARS

REACTIONS (3)
  - CEREBRAL HAEMORRHAGE [None]
  - DEATH [None]
  - INTERNATIONAL NORMALISED RATIO INCREASED [None]
